FAERS Safety Report 5480926-0 (Version None)
Quarter: 2007Q4

REPORT INFORMATION
  Report Type: 
  Country: None (occurrence: None)
  Receive Date: 20071009
  Receipt Date: 20070927
  Transmission Date: 20080405
  Serious: Yes (Other)
  Sender: FDA-Public Use
  Company Number: US-PFIZER INC-2007081883

PATIENT
  Sex: Female
  Weight: 66.7 kg

DRUGS (15)
  1. LYRICA [Suspect]
     Indication: NEURALGIA
     Route: 048
  2. ATIVAN [Interacting]
  3. OXYCODONE HCL [Interacting]
     Indication: BACK PAIN
  4. LASIX [Concomitant]
     Route: 048
  5. MELOXICAM [Concomitant]
     Route: 048
  6. VYTORIN [Concomitant]
  7. COZAAR [Concomitant]
  8. EFFEXOR [Concomitant]
  9. MONTELUKAST SODIUM [Concomitant]
  10. NEXIUM [Concomitant]
  11. ESTRADIOL [Concomitant]
  12. POTASSIUM CHLORIDE [Concomitant]
  13. ALBUTEROL [Concomitant]
  14. SPIRIVA [Concomitant]
  15. ADVAIR DISKUS 100/50 [Concomitant]

REACTIONS (4)
  - DRUG INTERACTION [None]
  - GAIT DISTURBANCE [None]
  - LOSS OF CONSCIOUSNESS [None]
  - SURGERY [None]
